FAERS Safety Report 8603941-4 (Version None)
Quarter: 2012Q3

REPORT INFORMATION
  Report Type: 
  Country: None (occurrence: None)
  Receive Date: 20120820
  Receipt Date: 20120810
  Transmission Date: 20120928
  Serious: Yes (Hospitalization)
  Sender: FDA-Public Use
  Company Number: US-BIOGENIDEC-2012BI021031

PATIENT
  Age: 42 Year
  Sex: Female

DRUGS (2)
  1. TYSABRI [Suspect]
     Indication: MULTIPLE SCLEROSIS
     Route: 042
     Dates: start: 20110310, end: 20110728
  2. TYSABRI [Suspect]
     Dates: start: 20111228

REACTIONS (4)
  - HYPOTENSION [None]
  - CONJUNCTIVITIS [None]
  - CONJUNCTIVITIS VIRAL [None]
  - MIGRAINE [None]
